FAERS Safety Report 15614094 (Version 2)
Quarter: 2018Q4

REPORT INFORMATION
  Report Type: Spontaneous
  Country: AU (occurrence: AU)
  Receive Date: 20181113
  Receipt Date: 20181126
  Transmission Date: 20190205
  Serious: Yes (Other)
  Sender: FDA-Public Use
  Company Number: PHHY2018AU151688

PATIENT
  Age: 72 Year
  Sex: Female

DRUGS (4)
  1. ILEVRO [Suspect]
     Active Substance: NEPAFENAC
     Indication: POSTOPERATIVE CARE
     Dosage: UNK
     Route: 047
     Dates: start: 20180309, end: 20180327
  2. ILEVRO [Suspect]
     Active Substance: NEPAFENAC
     Indication: PREOPERATIVE CARE
     Dosage: UNK
     Route: 047
     Dates: start: 20180223, end: 20180312
  3. PREDNEFRIN FORTE [Concomitant]
     Active Substance: PHENYLEPHRINE HYDROCHLORIDE\PREDNISOLONE ACETATE
     Indication: POST PROCEDURAL INFLAMMATION
     Dosage: 4 GTT, QD
     Route: 047
     Dates: start: 20180223, end: 20180312
  4. PREDNEFRIN FORTE [Concomitant]
     Active Substance: PHENYLEPHRINE HYDROCHLORIDE\PREDNISOLONE ACETATE
     Dosage: 4 GTT, QD
     Route: 047
     Dates: start: 20180223, end: 20180327

REACTIONS (4)
  - Eye colour change [Unknown]
  - Visual acuity reduced [Unknown]
  - Cystoid macular oedema [Recovering/Resolving]
  - Vision blurred [Unknown]

NARRATIVE: CASE EVENT DATE: 20180312
